FAERS Safety Report 5777950-7 (Version None)
Quarter: 2008Q2

REPORT INFORMATION
  Report Type: 
  Country: None (occurrence: None)
  Receive Date: 20080618
  Receipt Date: 20080618
  Transmission Date: 20081010
  Serious: Yes (Hospitalization)
  Sender: FDA-Public Use
  Company Number: None

PATIENT
  Age: 81 Year
  Sex: Male

DRUGS (3)
  1. SORAFENIB [Suspect]
     Indication: PROSTATE CANCER
     Dosage: 200 MG TWICE DAILY PO
     Route: 048
     Dates: start: 20080421, end: 20080608
  2. HYDROMORPHONE HCL [Concomitant]
  3. ONDANSETRON [Concomitant]

REACTIONS (4)
  - DYSURIA [None]
  - HYDRONEPHROSIS [None]
  - REFUSAL OF TREATMENT BY PATIENT [None]
  - URINE OUTPUT DECREASED [None]
